FAERS Safety Report 8760490 (Version 8)
Quarter: 2014Q2

REPORT INFORMATION
  Report Type: Spontaneous
  Country: US (occurrence: US)
  Receive Date: 20120830
  Receipt Date: 20140404
  Transmission Date: 20141212
  Serious: Yes (Hospitalization, Disabling, Other)
  Sender: FDA-Public Use
  Company Number: US-009507513-1205USA00034

PATIENT
  Sex: Female

DRUGS (7)
  1. FOSAMAX [Suspect]
     Indication: OSTEOPOROSIS
     Dosage: 70 MG, QW
     Route: 048
  2. FOSAMAX [Suspect]
     Dosage: 35 MG, UNK
     Route: 048
  3. FOSAMAX [Suspect]
     Dosage: UNK
     Route: 048
     Dates: start: 2005, end: 2011
  4. FOSAMAX [Suspect]
     Indication: OSTEOPOROSIS
     Dosage: 70 MG, UNK
     Route: 048
  5. ALENDRONATE SODIUM [Suspect]
     Dosage: 70 MG, UNK
     Route: 048
  6. RANITIDINE [Concomitant]
     Indication: ULCER
     Dosage: 300 MG, UNK
     Dates: start: 1970
  7. CALCIUM (UNSPECIFIED) [Concomitant]
     Dosage: 600 MG, UNK
     Dates: start: 1991

REACTIONS (29)
  - Femur fracture [Recovering/Resolving]
  - Open reduction of fracture [Recovering/Resolving]
  - Mastectomy [Unknown]
  - Breast cancer [Unknown]
  - Low turnover osteopathy [Unknown]
  - Device failure [Unknown]
  - Venous operation [Unknown]
  - Anxiety [Unknown]
  - Depression [Unknown]
  - Dental caries [Unknown]
  - Tooth extraction [Unknown]
  - Foot fracture [Unknown]
  - Blood cholesterol increased [Unknown]
  - Breast operation [Unknown]
  - Diverticulum intestinal [Unknown]
  - Dyslipidaemia [Unknown]
  - Fatigue [Not Recovered/Not Resolved]
  - Haemoglobin decreased [Unknown]
  - Spinal pain [Unknown]
  - Breast lump removal [Unknown]
  - Upper limb fracture [Unknown]
  - Rib fracture [Unknown]
  - Clavicle fracture [Unknown]
  - Upper limb fracture [Unknown]
  - Bone contusion [Unknown]
  - Osteoarthritis [Unknown]
  - Radiotherapy [Unknown]
  - Back pain [Unknown]
  - Oedema peripheral [Unknown]
